FAERS Safety Report 6391534-1 (Version None)
Quarter: 2009Q4

REPORT INFORMATION
  Report Type: 
  Country: None (occurrence: None)
  Receive Date: 20091006
  Receipt Date: 20091006
  Transmission Date: 20100525
  Serious: No
  Sender: FDA-Public Use
  Company Number: None

PATIENT
  Age: 49 Year
  Sex: Female
  Weight: 74.8435 kg

DRUGS (1)
  1. JANUVIA [Suspect]
     Indication: DIABETES MELLITUS
     Dosage: 100MG 1X A DAY PO
     Route: 048
     Dates: start: 20080701, end: 20090910

REACTIONS (4)
  - ARTHRALGIA [None]
  - FATIGUE [None]
  - MYALGIA [None]
  - THINKING ABNORMAL [None]
